FAERS Safety Report 13687567 (Version 3)
Quarter: 2017Q3

REPORT INFORMATION
  Report Type: Spontaneous
  Country: JP (occurrence: JP)
  Receive Date: 20170624
  Receipt Date: 20170821
  Transmission Date: 20171127
  Serious: Yes (Hospitalization, Other)
  Sender: FDA-Public Use
  Company Number: JP-JNJFOC-20170619485

PATIENT
  Age: 68 Year
  Sex: Male
  Weight: 51 kg

DRUGS (10)
  1. ZYRTEC [Suspect]
     Active Substance: CETIRIZINE HYDROCHLORIDE
     Indication: DRUG ERUPTION
     Route: 048
     Dates: start: 20170520, end: 20170527
  2. FAMOTIDINE. [Concomitant]
     Active Substance: FAMOTIDINE
     Indication: PRODUCT USED FOR UNKNOWN INDICATION
     Route: 065
  3. PREDONINE [Concomitant]
     Active Substance: PREDNISOLONE
     Indication: PRODUCT USED FOR UNKNOWN INDICATION
     Route: 065
  4. KINDAVATE [Concomitant]
     Active Substance: CLOBETASONE BUTYRATE
     Indication: PRODUCT USED FOR UNKNOWN INDICATION
     Route: 065
  5. AZUNOL [Concomitant]
     Active Substance: SODIUM GUALENATE
     Indication: PRODUCT USED FOR UNKNOWN INDICATION
     Route: 065
  6. ZYRTEC [Suspect]
     Active Substance: CETIRIZINE HYDROCHLORIDE
     Route: 048
  7. VALTREX [Suspect]
     Active Substance: VALACYCLOVIR HYDROCHLORIDE
     Indication: DRUG ERUPTION
     Route: 048
     Dates: start: 20170520, end: 20170527
  8. BILASTINE [Concomitant]
     Active Substance: BILASTINE
     Indication: PRODUCT USED FOR UNKNOWN INDICATION
     Route: 065
  9. ANTEBATE [Concomitant]
     Active Substance: BETAMETHASONE DIPROPIONATE
     Indication: PRODUCT USED FOR UNKNOWN INDICATION
     Route: 065
  10. FEXOFENADINE HCL [Concomitant]
     Active Substance: FEXOFENADINE HYDROCHLORIDE
     Indication: PRODUCT USED FOR UNKNOWN INDICATION
     Route: 065

REACTIONS (4)
  - Erythema multiforme [Recovering/Resolving]
  - Stevens-Johnson syndrome [Recovering/Resolving]
  - Product use in unapproved indication [Unknown]
  - Drug eruption [Recovering/Resolving]

NARRATIVE: CASE EVENT DATE: 20170520
